FAERS Safety Report 15167861 (Version 1)
Quarter: 2018Q3

REPORT INFORMATION
  Report Type: Spontaneous
  Country: DE (occurrence: DE)
  Receive Date: 20180719
  Receipt Date: 20180719
  Transmission Date: 20181010
  Serious: Yes (Life-Threatening, Hospitalization)
  Sender: FDA-Public Use
  Company Number: DE-MYLANLABS-2018M1052339

PATIENT
  Age: 66 Year
  Sex: Male
  Weight: 80 kg

DRUGS (2)
  1. METFORMIN [Suspect]
     Active Substance: METFORMIN HYDROCHLORIDE
     Dosage: 2000 MG, QD
     Route: 048
  2. METFORMIN [Suspect]
     Active Substance: METFORMIN HYDROCHLORIDE
     Indication: PRODUCT USED FOR UNKNOWN INDICATION
     Dosage: DAILY DOSE: 2000 MG MILLGRAM(S) EVERY DAYS, APPLICATION FOR MONTHS
     Route: 048

REACTIONS (2)
  - Lactic acidosis [Recovered/Resolved]
  - Renal failure [Recovered/Resolved]

NARRATIVE: CASE EVENT DATE: 20171012
